FAERS Safety Report 15353274 (Version 2)
Quarter: 2018Q3

REPORT INFORMATION
  Report Type: Spontaneous
  Country: IT (occurrence: JP)
  Receive Date: 20180905
  Receipt Date: 20180905
  Transmission Date: 20181010
  Serious: Yes (Hospitalization)
  Sender: FDA-Public Use
  Company Number: IT-LEADIANT BIOSCIENCES INC-2018STPI000549

PATIENT
  Age: 79 Year
  Sex: Female

DRUGS (6)
  1. CARNITOR [Suspect]
     Active Substance: LEVOCARNITINE
     Indication: CARDIAC FAILURE
  2. DEPROMEL                           /00615201/ [Concomitant]
     Active Substance: FLUVOXAMINE
  3. CARNITOR [Suspect]
     Active Substance: LEVOCARNITINE
     Indication: CARNITINE DEFICIENCY
     Dosage: 1000 MG, QD
     Route: 048
     Dates: start: 20180704
  4. ADALAT [Concomitant]
     Active Substance: NIFEDIPINE
  5. AZILVA [Concomitant]
     Active Substance: AZILSARTAN KAMEDOXOMIL
  6. DIART [Concomitant]
     Active Substance: AZOSEMIDE

REACTIONS (3)
  - Renal failure [Recovered/Resolved]
  - Thirst [Unknown]
  - Malaise [Recovered/Resolved]

NARRATIVE: CASE EVENT DATE: 20180712
